FAERS Safety Report 9514068 (Version 3)
Quarter: 2014Q1

REPORT INFORMATION
  Report Type: Spontaneous
  Country: US (occurrence: US)
  Receive Date: 20130910
  Receipt Date: 20140304
  Transmission Date: 20141002
  Serious: Yes (Hospitalization)
  Sender: FDA-Public Use
  Company Number: US-B.I. PHARMACEUTICALS,INC./RIDGEFIELD-2013-BI-27301BP

PATIENT
  Sex: Male
  Weight: 95.25 kg

DRUGS (16)
  1. PRADAXA [Suspect]
     Indication: ATRIAL FLUTTER
     Dosage: 300 MG
     Route: 048
     Dates: start: 201202, end: 20120409
  2. PRADAXA [Suspect]
     Indication: ATRIAL FIBRILLATION
  3. DILTIAZEM [Concomitant]
     Route: 065
  4. METOPROLOL [Concomitant]
     Route: 065
  5. ISOSORB [Concomitant]
     Route: 065
  6. SIMVASTATIN [Concomitant]
     Route: 065
  7. FINASTERIDE [Concomitant]
     Route: 065
  8. LISINOPRIL [Concomitant]
     Route: 065
  9. ALLOPURINOL [Concomitant]
     Route: 065
  10. FUROSEMIDE [Concomitant]
     Route: 065
  11. METOLAZON [Concomitant]
     Route: 065
  12. SYMBICORT [Concomitant]
     Route: 065
  13. NIACIN [Concomitant]
     Route: 065
  14. POTASSIUM [Concomitant]
     Route: 065
  15. FLOMAX [Concomitant]
     Route: 065
  16. ASPIRIN [Concomitant]
     Route: 065

REACTIONS (3)
  - Gastrointestinal haemorrhage [Recovered/Resolved]
  - Anaemia [Unknown]
  - Renal failure acute [Unknown]
